FAERS Safety Report 8023393-5 (Version None)
Quarter: 2012Q1

REPORT INFORMATION
  Report Type: 
  Country: None (occurrence: None)
  Receive Date: 20120104
  Receipt Date: 20120103
  Transmission Date: 20120608
  Serious: No
  Sender: FDA-Public Use
  Company Number: US-PFIZER INC-2012001510

PATIENT
  Sex: Female
  Weight: 74.8 kg

DRUGS (9)
  1. AMBIEN [Concomitant]
     Dosage: UNK
  2. PROMETHAZINE [Concomitant]
     Dosage: 25 MG
  3. LIPITOR [Concomitant]
     Dosage: UNK
  4. ENABLEX [Concomitant]
     Dosage: 7.5 MG
  5. LYRICA [Suspect]
     Indication: FIBROMYALGIA
     Dosage: 75 MG, 3X/DAY
     Route: 048
     Dates: start: 20090101
  6. FENTANYL [Concomitant]
     Dosage: 100 MG
     Route: 062
  7. NEURONTIN [Concomitant]
     Dosage: UNK
  8. CREON [Concomitant]
     Dosage: 4000 IU, 1X/DAY
  9. NUCYNTA [Concomitant]
     Dosage: UNK

REACTIONS (1)
  - OEDEMA PERIPHERAL [None]
